FAERS Safety Report 9889693 (Version 2)
Quarter: 2014Q1

REPORT INFORMATION
  Report Type: Spontaneous
  Country: US (occurrence: US)
  Receive Date: 20140211
  Receipt Date: 20140325
  Transmission Date: 20141002
  Serious: Yes (Other)
  Sender: FDA-Public Use
  Company Number: US-PFIZER INC-2014036845

PATIENT
  Age: 58 Year
  Sex: Male

DRUGS (12)
  1. LYRICA [Suspect]
     Dosage: 200 MG, 3X/DAY
  2. CARDURA [Suspect]
     Dosage: UNK
  3. GABAPENTIN [Suspect]
     Indication: NEURALGIA
     Dosage: UNK
  4. NEXIUM [Concomitant]
     Dosage: UNK
  5. MOBIC [Concomitant]
     Dosage: UNK
  6. KLONOPIN [Concomitant]
     Dosage: UNK
  7. OXYCODONE [Concomitant]
     Dosage: UNK
  8. WELLBUTRIN XL [Concomitant]
     Dosage: UNK
  9. CRESTOR [Concomitant]
     Dosage: UNK
  10. FENOFIBRATE [Concomitant]
     Dosage: UNK
  11. AMARYL [Concomitant]
     Dosage: UNK
  12. TYLENOL 500 [Concomitant]
     Dosage: UNK

REACTIONS (1)
  - Back disorder [Unknown]
